FAERS Safety Report 4837901-6 (Version None)
Quarter: 2005Q4

REPORT INFORMATION
  Report Type: 
  Country: None (occurrence: None)
  Receive Date: 20051123
  Receipt Date: 20051123
  Transmission Date: 20060501
  Serious: Yes (Death)
  Sender: FDA-Public Use
  Company Number: None

PATIENT
  Age: 13 Month
  Sex: Male
  Weight: 8.1 kg

DRUGS (4)
  1. SINGULAIR [Suspect]
     Indication: ASTHMA
     Dosage: 4 MG DAILY PO
     Route: 048
     Dates: start: 20050817, end: 20050819
  2. ALBUTEROL SULFATE [Concomitant]
  3. FLOVENT [Concomitant]
  4. ELIDEL [Concomitant]

REACTIONS (1)
  - DEATH [None]
